FAERS Safety Report 5740273-6 (Version None)
Quarter: 2008Q2

REPORT INFORMATION
  Report Type: 
  Country: None (occurrence: None)
  Receive Date: 20080516
  Receipt Date: 20080507
  Transmission Date: 20081010
  Serious: Yes (Other)
  Sender: FDA-Public Use
  Company Number: US-JNJFOC-20080502044

PATIENT
  Sex: Female
  Weight: 96.16 kg

DRUGS (13)
  1. DURAGESIC-100 [Suspect]
     Indication: RADICULAR PAIN
     Route: 062
  2. FENTANYL TRANSDERMAL SYSTEM [Suspect]
     Indication: RADICULAR PAIN
     Route: 062
  3. TRAMADOL HCL [Suspect]
     Dosage: AS NEEDED
     Route: 048
  4. TRAMADOL HCL [Suspect]
     Dosage: AS NEEDED
     Route: 048
  5. TRAMADOL HCL [Suspect]
     Indication: BONE PAIN
     Dosage: AS NEEDED
     Route: 048
  6. FUROSEMIDE [Suspect]
     Indication: SWELLING
     Dosage: AS NEEDED
     Route: 048
  7. HYDROCHLOROTHIAZIDE [Concomitant]
     Indication: BLOOD PRESSURE
     Route: 048
  8. LEVOTHYROXINE SODIUM [Concomitant]
     Indication: THYROID DISORDER
     Route: 048
  9. ESTRADIOL [Concomitant]
     Indication: HORMONE REPLACEMENT THERAPY
     Route: 048
  10. ALPRAZOLAM [Concomitant]
     Indication: NERVOUSNESS
     Route: 048
  11. ALPRAZOLAM [Concomitant]
     Indication: ANXIETY
     Dosage: AS NEEDED
     Route: 048
  12. BETAMETHASONE [Concomitant]
     Indication: PSORIASIS
     Route: 061
  13. ALBUTEROL [Concomitant]
     Indication: ASTHMA
     Dosage: 2 PUFFS AS NEEDED
     Route: 055

REACTIONS (10)
  - ANXIETY [None]
  - CONSTIPATION [None]
  - HYPERTENSION [None]
  - INADEQUATE ANALGESIA [None]
  - NERVOUSNESS [None]
  - PAIN [None]
  - PSORIASIS [None]
  - SWELLING [None]
  - UNEVALUABLE EVENT [None]
  - WEIGHT DECREASED [None]
